FAERS Safety Report 12283511 (Version 2)
Quarter: 2016Q2

REPORT INFORMATION
  Report Type: Report from Study
  Country: CA (occurrence: CA)
  Receive Date: 20160419
  Receipt Date: 20160502
  Transmission Date: 20160815
  Serious: Yes (Hospitalization, Other)
  Sender: FDA-Public Use
  Company Number: CA-BRISTOL-MYERS SQUIBB COMPANY-BMS-2016-027146

PATIENT
  Age: 36 Year
  Sex: Male
  Weight: 105 kg

DRUGS (2)
  1. NIVOLUMAB [Suspect]
     Active Substance: NIVOLUMAB
     Indication: METASTATIC MALIGNANT MELANOMA
     Dosage: 1 MG/KG, LAST DOSE: 12JAN2016
     Route: 042
     Dates: start: 20151027, end: 20160112
  2. IPILIMUMAB [Suspect]
     Active Substance: IPILIMUMAB
     Indication: METASTATIC MALIGNANT MELANOMA
     Dosage: 3 MG/KG, LAST DOSE: 12JAN2016
     Route: 042
     Dates: start: 20151027, end: 20160112

REACTIONS (3)
  - Seizure [Unknown]
  - Autoimmune colitis [Unknown]
  - Type 1 diabetes mellitus [Recovered/Resolved with Sequelae]

NARRATIVE: CASE EVENT DATE: 20160404
